FAERS Safety Report 11509036 (Version 1)
Quarter: 2015Q3

REPORT INFORMATION
  Report Type: Spontaneous
  Country: US (occurrence: US)
  Receive Date: 20150903
  Receipt Date: 20150903
  Transmission Date: 20151125
  Serious: No
  Sender: FDA-Public Use
  Company Number: US-ELI_LILLY_AND_COMPANY-US201002007404

PATIENT
  Sex: Female

DRUGS (2)
  1. HUMALOG [Suspect]
     Active Substance: INSULIN LISPRO
     Indication: DIABETES MELLITUS
     Dosage: UNK, AS NEEDED
  2. LANTUS [Concomitant]
     Active Substance: INSULIN GLARGINE

REACTIONS (13)
  - Headache [Unknown]
  - Blood glucose increased [Unknown]
  - Abdominal discomfort [Unknown]
  - Pruritus [Unknown]
  - Malaise [Unknown]
  - Dyspnoea [Unknown]
  - Pain [Unknown]
  - Blister [Unknown]
  - Drug ineffective [Unknown]
  - Vomiting [Unknown]
  - Rash [Unknown]
  - Migraine [Unknown]
  - Multiple chemical sensitivity [Unknown]

NARRATIVE: CASE EVENT DATE: 2000
